FAERS Safety Report 16585645 (Version 2)
Quarter: 2019Q4

REPORT INFORMATION
  Report Type: Report from Study
  Country: BR (occurrence: BR)
  Receive Date: 20190717
  Receipt Date: 20191106
  Transmission Date: 20200122
  Serious: Yes (Other)
  Sender: FDA-Public Use
  Company Number: PHHY2018BR165765

PATIENT
  Age: 61 Year
  Sex: Female
  Weight: 58 kg

DRUGS (3)
  1. COSENTYX [Suspect]
     Active Substance: SECUKINUMAB
     Dosage: UNK
     Route: 065
     Dates: start: 20181112
  2. COSENTYX [Suspect]
     Active Substance: SECUKINUMAB
     Indication: ANKYLOSING SPONDYLITIS
     Dosage: 150 MG, Q2W
     Route: 058
     Dates: start: 201811, end: 201811
  3. COSENTYX [Suspect]
     Active Substance: SECUKINUMAB
     Dosage: 150 MG, QMO
     Route: 058
     Dates: start: 20181121, end: 20190103

REACTIONS (18)
  - Joint stiffness [Not Recovered/Not Resolved]
  - Inappropriate schedule of product administration [Unknown]
  - Device issue [Not Recovered/Not Resolved]
  - Pain in extremity [Recovered/Resolved with Sequelae]
  - Gait disturbance [Not Recovered/Not Resolved]
  - Rhinitis allergic [Not Recovered/Not Resolved]
  - Sinusitis [Recovered/Resolved]
  - Pyrexia [Recovered/Resolved]
  - Malaise [Recovered/Resolved]
  - Spinal disorder [Recovered/Resolved]
  - Liver injury [Not Recovered/Not Resolved]
  - Transaminases abnormal [Not Recovered/Not Resolved]
  - Sluggishness [Recovered/Resolved]
  - Nasopharyngitis [Recovered/Resolved]
  - Nervousness [Not Recovered/Not Resolved]
  - Spinal pain [Recovered/Resolved with Sequelae]
  - Osteoarthritis [Not Recovered/Not Resolved]
  - Drug ineffective [Not Recovered/Not Resolved]

NARRATIVE: CASE EVENT DATE: 201811
